FAERS Safety Report 6429570-9 (Version None)
Quarter: 2009Q4

REPORT INFORMATION
  Report Type: 
  Country: None (occurrence: None)
  Receive Date: 20091103
  Receipt Date: 20091020
  Transmission Date: 20100525
  Serious: Yes (Hospitalization)
  Sender: FDA-Public Use
  Company Number: 2009-198860-NL

PATIENT
  Age: 32 Year
  Sex: Female
  Weight: 54.4316 kg

DRUGS (8)
  1. NUVARING [Suspect]
     Indication: CONTRACEPTION
     Dosage: 1 DF
     Dates: start: 20070201, end: 20071004
  2. ZITHROMAX [Concomitant]
  3. HISTENEX [Concomitant]
  4. ORTHO TRI-CYCLEN LO [Concomitant]
  5. ORTHO CYLCLEN [Concomitant]
  6. DESOGEN [Concomitant]
  7. ORTHO-NOVUM [Concomitant]
  8. DEPO-MEDROL [Concomitant]

REACTIONS (15)
  - ABDOMINAL PAIN LOWER [None]
  - ATRIAL TACHYCARDIA [None]
  - BRONCHITIS [None]
  - DECREASED APPETITE [None]
  - DYSPNOEA [None]
  - HAEMOPTYSIS [None]
  - HYPOPHAGIA [None]
  - INSOMNIA [None]
  - INTERNATIONAL NORMALISED RATIO DECREASED [None]
  - PALPITATIONS [None]
  - PNEUMONIA [None]
  - PULMONARY EMBOLISM [None]
  - SPLINTER HAEMORRHAGES [None]
  - UPPER RESPIRATORY TRACT INFECTION [None]
  - WEIGHT DECREASED [None]
